FAERS Safety Report 7834866-X (Version None)
Quarter: 2011Q4

REPORT INFORMATION
  Report Type: 
  Country: None (occurrence: None)
  Receive Date: 20111020
  Receipt Date: 20111011
  Transmission Date: 20120403
  Serious: Yes (Hospitalization)
  Sender: FDA-Public Use
  Company Number: DSM-2011-00957

PATIENT
  Age: 73 Year
  Sex: Male

DRUGS (5)
  1. ESOMEPRAZOLE MAGNESIUM (ESOMEPRAZOLE MAGNESIUM) (ESOMEPRAZOLE MAGNESIU [Concomitant]
  2. EUTIROX (LEVOTHYROXINE SODIUM) (LEVOTHYROXINE SODIUM) [Concomitant]
  3. MULTAQ [Suspect]
     Indication: ATRIAL FIBRILLATION
     Dosage: ORAL
     Route: 048
     Dates: start: 20110627, end: 20110819
  4. ENOXAPARIN SODIUM [Concomitant]
  5. OLMESARTAN MEDOXOMIL [Suspect]
     Indication: HYPERTENSION
     Dosage: 2.5 MG, ORAL
     Route: 048
     Dates: start: 20110401, end: 20110819

REACTIONS (2)
  - RENAL FAILURE ACUTE [None]
  - HYPOTENSION [None]
